FAERS Safety Report 8294230-9 (Version None)
Quarter: 2012Q2

REPORT INFORMATION
  Report Type: 
  Country: None (occurrence: None)
  Receive Date: 20120418
  Receipt Date: 20120416
  Transmission Date: 20120825
  Serious: Yes (Other)
  Sender: FDA-Public Use
  Company Number: PHHY2012IE025074

PATIENT
  Age: 53 Year
  Sex: Female

DRUGS (6)
  1. VALPROATE SODIUM [Concomitant]
     Dosage: 900 MG, NOCTE
     Dates: start: 20110701
  2. ZOPICLONE [Concomitant]
     Dosage: 7.5 MG, NOCTE
     Dates: start: 20110701
  3. SOLIAN [Concomitant]
     Dosage: 200 MG,QDS
     Dates: start: 20110701
  4. AKINETON [Concomitant]
     Dosage: 2 MG, UNK
     Route: 048
     Dates: start: 20110701
  5. LIPITOR [Concomitant]
     Indication: BLOOD CHOLESTEROL ABNORMAL
     Dosage: 20 MG, QD
     Route: 048
     Dates: start: 20110701
  6. CLOZARIL [Suspect]
     Indication: SCHIZOPHRENIA
     Dosage: 25 MG, TID
     Route: 048

REACTIONS (2)
  - INCORRECT DOSE ADMINISTERED [None]
  - PARANOIA [None]
